FAERS Safety Report 9454509 (Version 1)
Quarter: 2013Q3

REPORT INFORMATION
  Report Type: Spontaneous
  Country: MX (occurrence: MX)
  Receive Date: 20130812
  Receipt Date: 20130812
  Transmission Date: 20140515
  Serious: Yes (Other)
  Sender: FDA-Public Use
  Company Number: MX-GLAXOSMITHKLINE-A1037074A

PATIENT
  Age: 67 Year
  Sex: Male
  Weight: 102 kg

DRUGS (1)
  1. AVODART [Suspect]
     Indication: PROSTATIC DISORDER
     Dosage: 1CAP PER DAY
     Route: 065
     Dates: start: 2003, end: 20130515

REACTIONS (4)
  - Gastritis erosive [Unknown]
  - Headache [Unknown]
  - Vomiting [Unknown]
  - Dizziness [Not Recovered/Not Resolved]
